FAERS Safety Report 14072951 (Version 1)
Quarter: 2017Q4

REPORT INFORMATION
  Report Type: Spontaneous
  Country: US (occurrence: US)
  Receive Date: 20171010
  Receipt Date: 20171010
  Transmission Date: 20180321
  Serious: No
  Sender: FDA-Public Use
  Company Number: US-JNJFOC-20150205585

PATIENT
  Age: 80 Year
  Sex: Female
  Weight: 63 kg

DRUGS (4)
  1. IMBRUVICA [Suspect]
     Active Substance: IBRUTINIB
     Indication: MANTLE CELL LYMPHOMA
     Route: 048
     Dates: start: 20150115
  2. POVIDONE-IODINE. [Concomitant]
     Active Substance: POVIDONE-IODINE
  3. ASPIRIN. [Concomitant]
     Active Substance: ASPIRIN
  4. LOSARTAN POTASSIUM. [Concomitant]
     Active Substance: LOSARTAN POTASSIUM

REACTIONS (4)
  - Product packaging quantity issue [Unknown]
  - Diarrhoea [Not Recovered/Not Resolved]
  - Fatigue [Recovering/Resolving]
  - Stomatitis [Not Recovered/Not Resolved]

NARRATIVE: CASE EVENT DATE: 2015
